FAERS Safety Report 4579250-X (Version None)
Quarter: 2005Q1

REPORT INFORMATION
  Report Type: 
  Country: None (occurrence: None)
  Receive Date: 20050209
  Receipt Date: 20050209
  Transmission Date: 20050727
  Serious: Yes (Other)
  Sender: FDA-Public Use
  Company Number: None

PATIENT
  Age: 37 Year
  Sex: Female
  Weight: 49.8957 kg

DRUGS (1)
  1. KY JELLY JOHNSON + JOHNSON [Suspect]
     Indication: VULVOVAGINAL DRYNESS
     Dosage: ROUTINELY VAGINAL
     Route: 067
     Dates: start: 20040301, end: 20050208

REACTIONS (3)
  - INFERTILITY [None]
  - MEDICATION ERROR [None]
  - PHARMACEUTICAL PRODUCT COMPLAINT [None]
